FAERS Safety Report 5956852-7 (Version None)
Quarter: 2008Q4

REPORT INFORMATION
  Report Type: 
  Country: None (occurrence: None)
  Receive Date: 20081118
  Receipt Date: 20081105
  Transmission Date: 20090506
  Serious: Yes (Other)
  Sender: FDA-Public Use
  Company Number: JP-PFIZER INC-2008094352

PATIENT
  Age: 37 Year
  Sex: Female

DRUGS (4)
  1. ZITHROMAX [Suspect]
     Indication: INFECTION
     Dosage: DAILY DOSE:500MG
     Route: 048
     Dates: start: 20081027, end: 20081029
  2. MUCODYNE [Concomitant]
     Indication: PRODUCTIVE COUGH
     Dates: start: 20081027, end: 20081029
  3. ASVERIN [Concomitant]
     Indication: COUGH
     Dates: start: 20081027, end: 20081029
  4. TRANSAMIN [Concomitant]
     Indication: INFLAMMATION
     Dates: start: 20081027, end: 20081029

REACTIONS (1)
  - INTESTINAL HAEMORRHAGE [None]
